FAERS Safety Report 10877908 (Version 1)
Quarter: 2015Q1

REPORT INFORMATION
  Report Type: Spontaneous
  Country: US (occurrence: US)
  Receive Date: 20150302
  Receipt Date: 20150302
  Transmission Date: 20150721
  Serious: No
  Sender: FDA-Public Use
  Company Number: US-009507513-1502USA010286

PATIENT
  Age: 46 Year
  Sex: Female

DRUGS (1)
  1. GANIRELIX ACETATE INJECTION [Suspect]
     Active Substance: GANIRELIX ACETATE
     Indication: BLOOD LUTEINISING HORMONE ABNORMAL
     Dosage: 2 INJECTIONS A DAY
     Route: 058
     Dates: end: 20150221

REACTIONS (4)
  - Emotional distress [Unknown]
  - Adnexa uteri pain [Unknown]
  - Incorrect product storage [Unknown]
  - Drug ineffective [Unknown]

NARRATIVE: CASE EVENT DATE: 20150220
